FAERS Safety Report 19716726 (Version 7)
Quarter: 2022Q4

REPORT INFORMATION
  Report Type: Spontaneous
  Country: JP (occurrence: JP)
  Receive Date: 20210818
  Receipt Date: 20221215
  Transmission Date: 20230112
  Serious: Yes (Hospitalization, Other)
  Sender: FDA-Public Use
  Company Number: JP-BRISTOL-MYERS SQUIBB COMPANY-BMS-2021-081148

PATIENT
  Age: 57 Year
  Sex: Female

DRUGS (3)
  1. OPDIVO [Suspect]
     Active Substance: NIVOLUMAB
     Indication: Colon cancer
     Dosage: 240 MILLIGRAM
     Route: 041
     Dates: start: 20201225, end: 20210409
  2. OPDIVO [Suspect]
     Active Substance: NIVOLUMAB
     Dosage: 240 MILLIGRAM
     Route: 041
     Dates: start: 20210430, end: 20210820
  3. YERVOY [Suspect]
     Active Substance: IPILIMUMAB
     Indication: Colon cancer
     Dosage: 47 MILLIGRAM
     Route: 041
     Dates: start: 20201225, end: 20210409

REACTIONS (3)
  - Toxic skin eruption [Recovering/Resolving]
  - Hypopituitarism [Not Recovered/Not Resolved]
  - Immune-mediated myocarditis [Recovering/Resolving]

NARRATIVE: CASE EVENT DATE: 20210101
